FAERS Safety Report 6356600-5 (Version None)
Quarter: 2009Q3

REPORT INFORMATION
  Report Type: 
  Country: None (occurrence: None)
  Receive Date: 20090911
  Receipt Date: 20090911
  Transmission Date: 20100115
  Serious: Yes (Life-Threatening, Hospitalization)
  Sender: FDA-Public Use
  Company Number: None

PATIENT
  Age: 84 Year
  Sex: Male
  Weight: 93.4 kg

DRUGS (1)
  1. ENALAPRILAT [Suspect]
     Indication: HYPERTENSION
     Dosage: 125 MG PRN IV
     Route: 042
     Dates: start: 20090906, end: 20090907

REACTIONS (3)
  - ACUTE RESPIRATORY FAILURE [None]
  - ANGIOEDEMA [None]
  - OBSTRUCTIVE AIRWAYS DISORDER [None]
